FAERS Safety Report 17714198 (Version 1)
Quarter: 2020Q2

REPORT INFORMATION
  Report Type: Spontaneous
  Country: ZA (occurrence: ZA)
  Receive Date: 20200427
  Receipt Date: 20200427
  Transmission Date: 20200714
  Serious: Yes (Hospitalization)
  Sender: FDA-Public Use
  Company Number: ZA-PFIZER INC-2020165088

PATIENT
  Age: 69 Year
  Sex: Male

DRUGS (2)
  1. VFEND [Suspect]
     Active Substance: VORICONAZOLE
     Indication: SYNOVIAL SARCOMA
     Dosage: 200 MG FOR 2WEEKS
     Dates: end: 20200422
  2. VFEND [Suspect]
     Active Substance: VORICONAZOLE
     Indication: FUNGAL INFECTION

REACTIONS (3)
  - Arthralgia [Unknown]
  - Peripheral swelling [Recovering/Resolving]
  - Mobility decreased [Unknown]
